FAERS Safety Report 6200828-1 (Version None)
Quarter: 2009Q2

REPORT INFORMATION
  Report Type: 
  Country: None (occurrence: None)
  Receive Date: 20090522
  Receipt Date: 20080922
  Transmission Date: 20091009
  Serious: No
  Sender: FDA-Public Use
  Company Number: US-ALEXION-A200800101

PATIENT
  Sex: Female

DRUGS (4)
  1. SOLIRIS [Suspect]
     Indication: PAROXYSMAL NOCTURNAL HAEMOGLOBINURIA
     Dosage: 600 MG, SINGLE
     Route: 042
     Dates: start: 20080425, end: 20080425
  2. PREDNISONE [Concomitant]
     Indication: ARTHROPATHY
     Dosage: INJECTIONS IN KNEES, PRN
     Route: 014
  3. COUMADIN [Concomitant]
     Dosage: UNK, QD
     Route: 048
  4. AGGRENOX [Concomitant]
     Dosage: UNK, QD
     Route: 048

REACTIONS (5)
  - ASTHENIA [None]
  - FATIGUE [None]
  - HEADACHE [None]
  - HOT FLUSH [None]
  - PAIN [None]
